FAERS Safety Report 6453262-3 (Version None)
Quarter: 2009Q4

REPORT INFORMATION
  Report Type: 
  Country: None (occurrence: None)
  Receive Date: 20091124
  Receipt Date: 20091116
  Transmission Date: 20100525
  Serious: No
  Sender: FDA-Public Use
  Company Number: US-BAYER-200939701NA

PATIENT
  Age: 39 Year
  Sex: Female

DRUGS (1)
  1. MIRENA [Suspect]
     Indication: CONTRACEPTION
     Dosage: CONTINUOUS
     Route: 015
     Dates: start: 20081001

REACTIONS (10)
  - ABDOMINAL DISTENSION [None]
  - ABNORMAL BEHAVIOUR [None]
  - ACNE [None]
  - AFFECT LABILITY [None]
  - AMENORRHOEA [None]
  - MALAISE [None]
  - MENOPAUSAL SYMPTOMS [None]
  - MOOD ALTERED [None]
  - NAUSEA [None]
  - TEARFULNESS [None]
